FAERS Safety Report 9734287 (Version 1)
Quarter: 2013Q4

REPORT INFORMATION
  Report Type: Spontaneous
  Country: DE (occurrence: DE)
  Receive Date: 20131205
  Receipt Date: 20131205
  Transmission Date: 20140711
  Serious: Yes (Hospitalization)
  Sender: FDA-Public Use
  Company Number: DE-ROCHE-1310626

PATIENT
  Age: 41 Year
  Sex: Female

DRUGS (3)
  1. AVASTIN [Suspect]
     Indication: OVARIAN CANCER METASTATIC
     Dosage: 6 CYCLES IN TOTAL
     Route: 065
     Dates: start: 201208, end: 201211
  2. ENDOXAN [Suspect]
     Indication: OVARIAN CANCER METASTATIC
     Route: 048
     Dates: start: 2009
  3. ENDOXAN [Suspect]
     Route: 065
     Dates: start: 201208

REACTIONS (5)
  - Bladder perforation [Recovered/Resolved]
  - Intestinal perforation [Recovered/Resolved]
  - Intestinal obstruction [Recovered/Resolved]
  - Hypertension [Unknown]
  - Nail bed disorder [Recovered/Resolved]
